FAERS Safety Report 8855892 (Version 1)
Quarter: 2012Q4

REPORT INFORMATION
  Report Type: Spontaneous
  Country: US (occurrence: None)
  Receive Date: 20121022
  Receipt Date: 20121022
  Transmission Date: 20130627
  Serious: Yes (Other)
  Sender: FDA-Public Use
  Company Number: None

PATIENT
  Sex: Female

DRUGS (2)
  1. SENSIPAR [Suspect]
     Indication: HYPERPARATHYROIDISM SECONDARY
     Route: 048
     Dates: start: 20120717
  2. SENSIPAR [Suspect]
     Indication: RENAL DISORDER
     Route: 048
     Dates: start: 20120717

REACTIONS (3)
  - Dizziness [None]
  - Tremor [None]
  - Palpitations [None]
